FAERS Safety Report 23821807 (Version 1)
Quarter: 2024Q2

REPORT INFORMATION
  Report Type: Spontaneous
  Country: US (occurrence: US)
  Receive Date: 20240506
  Receipt Date: 20240506
  Transmission Date: 20240716
  Serious: Yes (Other)
  Sender: FDA-Public Use
  Company Number: US-SA-SAC20240430000513

PATIENT
  Age: 33 Year
  Sex: Male

DRUGS (1)
  1. DUPIXENT [Suspect]
     Active Substance: DUPILUMAB
     Indication: Asthma
     Dosage: 600MG QD
     Route: 058

REACTIONS (4)
  - Pneumonia [Unknown]
  - Myalgia [Unknown]
  - Inappropriate schedule of product administration [Unknown]
  - Arthralgia [Unknown]
